FAERS Safety Report 6036387-6 (Version None)
Quarter: 2009Q1

REPORT INFORMATION
  Report Type: 
  Country: None (occurrence: None)
  Receive Date: 20090112
  Receipt Date: 20081215
  Transmission Date: 20090719
  Serious: No
  Sender: FDA-Public Use
  Company Number: 123611

PATIENT
  Age: 24 Year
  Sex: Female
  Weight: 54.43 kg

DRUGS (2)
  1. ACETYLCYSTEINE [Suspect]
     Dosage: 900 MG, ONCE, INTRAVENOUS
     Route: 042
     Dates: start: 20081120, end: 20081120
  2. DEXTROSE [Concomitant]

REACTIONS (4)
  - ANAPHYLACTIC SHOCK [None]
  - CHEST PAIN [None]
  - OFF LABEL USE [None]
  - OVERDOSE [None]
